FAERS Safety Report 5118539-2 (Version None)
Quarter: 2006Q3

REPORT INFORMATION
  Report Type: 
  Country: None (occurrence: None)
  Receive Date: 20060927
  Receipt Date: 20060915
  Transmission Date: 20061208
  Serious: Yes (Other)
  Sender: FDA-Public Use
  Company Number: T200601022

PATIENT
  Sex: Female

DRUGS (1)
  1. OPTIRAY 300 [Suspect]
     Dosage: SINGLE

REACTIONS (2)
  - DIALYSIS [None]
  - RENAL FAILURE ACUTE [None]
